FAERS Safety Report 18475130 (Version 1)
Quarter: 2020Q4

REPORT INFORMATION
  Report Type: Report from Study
  Country: ES (occurrence: ES)
  Receive Date: 20201106
  Receipt Date: 20201106
  Transmission Date: 20210114
  Serious: Yes (Death, Other)
  Sender: FDA-Public Use
  Company Number: ES-BAUSCH-BL-2020-032156

PATIENT
  Age: 90 Year
  Sex: Female

DRUGS (9)
  1. DEXAMETASONA [Suspect]
     Active Substance: DEXAMETHASONE
     Indication: COVID-19 PNEUMONIA
     Route: 042
     Dates: start: 20200831
  2. REMDESIVIR (10009A) [Suspect]
     Active Substance: REMDESIVIR
     Indication: COVID-19 PNEUMONIA
     Dosage: 200/MG THE FIRST DAY
     Route: 042
     Dates: start: 20200831, end: 20200831
  3. LEVOFLOXACINO (2791A) [Suspect]
     Active Substance: LEVOFLOXACIN
     Indication: COVID-19 PNEUMONIA
     Route: 042
     Dates: start: 20200831
  4. REMDESIVIR (10009A) [Suspect]
     Active Substance: REMDESIVIR
     Dosage: 100 MG THE REMAINING 4 DAYS
     Route: 042
     Dates: start: 20200901, end: 20200904
  5. AZITROMICINA [Suspect]
     Active Substance: AZITHROMYCIN DIHYDRATE
     Indication: COVID-19 PNEUMONIA
     Route: 048
     Dates: start: 20200831, end: 20200902
  6. CEFTRIAXONA (501A) [Suspect]
     Active Substance: CEFTRIAXONE
     Indication: COVID-19 PNEUMONIA
     Route: 042
     Dates: start: 20200831
  7. OMEPRAZOL (2141A) [Suspect]
     Active Substance: OMEPRAZOLE
     Indication: PRODUCT USED FOR UNKNOWN INDICATION
     Dosage: 1 AMPOULE DAILY
     Route: 042
     Dates: start: 20200831
  8. CLEXANE [Suspect]
     Active Substance: ENOXAPARIN SODIUM
     Indication: PRODUCT USED FOR UNKNOWN INDICATION
     Dosage: STRENGTH: 4,000 IU (40 MG) / 0.4 ML, 1-0-0
     Route: 058
     Dates: start: 20200831
  9. SEGURIL [Suspect]
     Active Substance: FUROSEMIDE
     Indication: PRODUCT USED FOR UNKNOWN INDICATION
     Dosage: 1-0-0
     Route: 048
     Dates: start: 20200831

REACTIONS (2)
  - Acute kidney injury [Fatal]
  - Agitation [Not Recovered/Not Resolved]

NARRATIVE: CASE EVENT DATE: 202009
